FAERS Safety Report 8014688-X (Version None)
Quarter: 2011Q4

REPORT INFORMATION
  Report Type: 
  Country: None (occurrence: None)
  Receive Date: 20111229
  Receipt Date: 20111216
  Transmission Date: 20120403
  Serious: Yes (Other)
  Sender: FDA-Public Use
  Company Number: JP-PFIZER INC-2011314994

PATIENT
  Age: 74 Year
  Sex: Male

DRUGS (4)
  1. LIPITOR [Suspect]
     Indication: HYPERLIPIDAEMIA
     Dosage: 10 MG, DAILY
     Route: 048
     Dates: start: 20080101
  2. LISINOPRIL [Concomitant]
     Route: 048
  3. TICLOPIDINE HYDROCHLORIDE [Concomitant]
     Route: 048
  4. URIEF [Concomitant]
     Route: 048

REACTIONS (5)
  - RHABDOMYOLYSIS [None]
  - BACK DISORDER [None]
  - GAIT DISTURBANCE [None]
  - BLOOD CREATININE INCREASED [None]
  - MYOGLOBIN BLOOD INCREASED [None]
